FAERS Safety Report 17660761 (Version 2)
Quarter: 2020Q2

REPORT INFORMATION
  Report Type: Spontaneous
  Country: US (occurrence: US)
  Receive Date: 20200413
  Receipt Date: 20200504
  Transmission Date: 20200713
  Serious: Yes (Other)
  Sender: FDA-Public Use
  Company Number: US-BAYER-2020-057737

PATIENT
  Age: 32 Year
  Sex: Female
  Weight: 86.17 kg

DRUGS (1)
  1. MIRENA [Suspect]
     Active Substance: LEVONORGESTREL
     Indication: CONTRACEPTION
     Dosage: 20?G PER DAY ,CONTINUOUSLY
     Route: 015
     Dates: start: 20200228, end: 20200417

REACTIONS (4)
  - Device use issue [None]
  - Uterine perforation [Recovered/Resolved]
  - Device issue [Recovered/Resolved]
  - Post procedural discomfort [Recovered/Resolved]

NARRATIVE: CASE EVENT DATE: 20200228
